FAERS Safety Report 19435550 (Version 2)
Quarter: 2022Q1

REPORT INFORMATION
  Report Type: Spontaneous
  Country: US (occurrence: US)
  Receive Date: 20210618
  Receipt Date: 20220214
  Transmission Date: 20220423
  Serious: No
  Sender: FDA-Public Use
  Company Number: US-PFIZER INC-2021571415

PATIENT
  Age: 68 Year
  Sex: Female
  Weight: 161.03 kg

DRUGS (1)
  1. PREGABALIN [Suspect]
     Active Substance: PREGABALIN
     Indication: Nerve injury
     Dosage: 100 MG, 2X/DAY
     Route: 048

REACTIONS (4)
  - Impaired healing [Unknown]
  - Wound haemorrhage [Unknown]
  - Limb injury [Unknown]
  - Headache [Unknown]
